FAERS Safety Report 5276253-7 (Version None)
Quarter: 2007Q1

REPORT INFORMATION
  Report Type: 
  Country: None (occurrence: None)
  Receive Date: 20070326
  Receipt Date: 20070314
  Transmission Date: 20070707
  Serious: Yes (Other)
  Sender: FDA-Public Use
  Company Number: US-PFIZER INC-2007021612

PATIENT
  Sex: Female

DRUGS (9)
  1. EXUBERA [Suspect]
  2. CELEBREX [Suspect]
  3. LOVENOX [Concomitant]
  4. LANTUS [Concomitant]
  5. WELLBUTRIN [Concomitant]
  6. SYNTHROID [Concomitant]
  7. MONTELUKAST SODIUM [Concomitant]
  8. ADVAIR DISKUS 100/50 [Concomitant]
  9. NEURONTIN [Concomitant]

REACTIONS (2)
  - PANCREATIC NEOPLASM [None]
  - RASH ERYTHEMATOUS [None]
